FAERS Safety Report 20844098 (Version 1)
Quarter: 2022Q2

REPORT INFORMATION
  Report Type: Spontaneous
  Country: US (occurrence: None)
  Receive Date: 20220517
  Receipt Date: 20220517
  Transmission Date: 20220721
  Serious: Yes (Hospitalization)
  Sender: FDA-Public Use
  Company Number: None

PATIENT
  Sex: Female
  Weight: 55.79 kg

DRUGS (20)
  1. KEYTRUDA [Suspect]
     Active Substance: PEMBROLIZUMAB
     Indication: Lung neoplasm malignant
     Dosage: OTHER FREQUENCY : EVERY3WEEKS ;?
     Route: 042
  2. VENOFER [Suspect]
     Active Substance: IRON SUCROSE
     Indication: Lung neoplasm malignant
     Dosage: OTHER FREQUENCY : EVERY4WEEKS;?
     Route: 042
  3. FERROUS SULFATE [Concomitant]
     Active Substance: FERROUS SULFATE
  4. OXYCODONE [Concomitant]
  5. MYLANTA [Concomitant]
  6. ACETAMINOPHEN [Concomitant]
     Active Substance: ACETAMINOPHEN
  7. CIMETIDINE [Concomitant]
     Active Substance: CIMETIDINE
  8. AMBIEN [Concomitant]
     Active Substance: ZOLPIDEM TARTRATE
  9. TRAMADOL [Concomitant]
     Active Substance: TRAMADOL
  10. PANTOPRAZOLE [Concomitant]
     Active Substance: PANTOPRAZOLE
  11. TESSALON [Concomitant]
     Active Substance: BENZONATATE
  12. TRIAMCINOLONE [Concomitant]
     Active Substance: TRIAMCINOLONE
  13. IBUPROFEN [Concomitant]
     Active Substance: IBUPROFEN
  14. VITAMINS [Concomitant]
     Active Substance: VITAMINS
  15. LORATADINE [Concomitant]
     Active Substance: LORATADINE
  16. ALBUTEROL [Concomitant]
     Active Substance: ALBUTEROL
  17. FLONASE [Concomitant]
  18. CYCLOBENZAPRINE [Concomitant]
     Active Substance: CYCLOBENZAPRINE
  19. CALCIUM [Concomitant]
     Active Substance: CALCIUM
  20. LIPITOR [Concomitant]
     Active Substance: ATORVASTATIN CALCIUM

REACTIONS (1)
  - Hospitalisation [None]
